FAERS Safety Report 9478735 (Version 1)
Quarter: 2013Q3

REPORT INFORMATION
  Report Type: Report from Study
  Country: CA (occurrence: CA)
  Receive Date: 20130827
  Receipt Date: 20130827
  Transmission Date: 20140515
  Serious: Yes (Other)
  Sender: FDA-Public Use
  Company Number: CA-ABBOTT-13P-028-1136519-00

PATIENT
  Sex: Male
  Weight: 81.72 kg

DRUGS (8)
  1. KALETRA 200/50 [Suspect]
     Indication: ANTIRETROVIRAL THERAPY
     Dosage: 200/50 MG
     Route: 048
     Dates: start: 2010
  2. GABAPENTIN [Concomitant]
     Indication: FIBROMYALGIA
     Route: 048
  3. LYRICA [Concomitant]
     Indication: FIBROMYALGIA
     Route: 048
  4. APO FENOMICRO [Concomitant]
     Indication: BLOOD CHOLESTEROL
     Route: 048
  5. MIRTAZAPINE [Concomitant]
     Indication: DEPRESSION
     Route: 048
  6. TEMAZEPAM [Concomitant]
     Indication: INSOMNIA
     Dosage: AT BEDTIME
     Route: 048
  7. PERCOCET/OXYCODONE [Concomitant]
     Indication: PAIN
     Route: 048
  8. PMS HYDROMORPHINE [Concomitant]
     Indication: PAIN
     Dosage: 2 TABS, 4 TIMES DAILY, AS NEEDED
     Route: 048

REACTIONS (3)
  - Skin cancer [Not Recovered/Not Resolved]
  - Constipation [Not Recovered/Not Resolved]
  - Diarrhoea [Not Recovered/Not Resolved]
